FAERS Safety Report 5924033-9 (Version None)
Quarter: 2008Q4

REPORT INFORMATION
  Report Type: 
  Country: None (occurrence: None)
  Receive Date: 20081020
  Receipt Date: 20081013
  Transmission Date: 20090506
  Serious: Yes (Other)
  Sender: FDA-Public Use
  Company Number: PHHY2008DE24844

PATIENT
  Age: 80 Year
  Sex: Male

DRUGS (2)
  1. FAMVIR [Suspect]
     Dosage: 250 MG, TID
     Dates: start: 20070101
  2. MARCUMAR [Concomitant]
     Dosage: UNK

REACTIONS (9)
  - C-REACTIVE PROTEIN INCREASED [None]
  - EYE HAEMORRHAGE [None]
  - GRANULOCYTE COUNT DECREASED [None]
  - HAEMOGLOBIN DECREASED [None]
  - PLATELET COUNT DECREASED [None]
  - RED BLOOD CELL COUNT DECREASED [None]
  - RED BLOOD CELL SEDIMENTATION RATE INCREASED [None]
  - RETINAL VEIN THROMBOSIS [None]
  - VISUAL IMPAIRMENT [None]
